FAERS Safety Report 18510623 (Version 2)
Quarter: 2022Q2

REPORT INFORMATION
  Report Type: Report from Study
  Country: US (occurrence: US)
  Receive Date: 20201117
  Receipt Date: 20220513
  Transmission Date: 20220721
  Serious: Yes (Other)
  Sender: FDA-Public Use
  Company Number: US-TEVA-2020-US-1849153

PATIENT
  Age: 52 Year
  Sex: Male

DRUGS (1)
  1. CLOZAPINE [Suspect]
     Active Substance: CLOZAPINE
     Indication: Schizoaffective disorder
     Dosage: DOSE: ONE TABLET OF 50MG AND ONE TABLET OF 100MG FOR A TOTAL OF 150MG DAILY AT BEDTIME
     Route: 065

REACTIONS (1)
  - Granulocytopenia [Unknown]
